FAERS Safety Report 19686220 (Version 5)
Quarter: 2021Q4

REPORT INFORMATION
  Report Type: Report from Study
  Country: US (occurrence: US)
  Receive Date: 20210811
  Receipt Date: 20211004
  Transmission Date: 20220303
  Serious: Yes (Other)
  Sender: FDA-Public Use
  Company Number: US-JNJFOC-20210816668

PATIENT
  Age: 83 Year
  Sex: Female
  Weight: 88.53 kg

DRUGS (2)
  1. SELEXIPAG [Suspect]
     Active Substance: SELEXIPAG
     Indication: Pulmonary arterial hypertension
     Route: 048
     Dates: start: 20210315
  2. ELIQUIS [Concomitant]
     Active Substance: APIXABAN

REACTIONS (8)
  - Cellulitis [Recovering/Resolving]
  - Headache [Not Recovered/Not Resolved]
  - Peripheral coldness [Not Recovered/Not Resolved]
  - Bedridden [Recovered/Resolved]
  - Trigger finger [Not Recovered/Not Resolved]
  - Pain in jaw [Not Recovered/Not Resolved]
  - Facial pain [Unknown]
  - Seasonal allergy [Unknown]

NARRATIVE: CASE EVENT DATE: 20210715
